FAERS Safety Report 20288696 (Version 4)
Quarter: 2022Q1

REPORT INFORMATION
  Report Type: Spontaneous
  Country: US (occurrence: US)
  Receive Date: 20220104
  Receipt Date: 20220207
  Transmission Date: 20220424
  Serious: Yes (Hospitalization, Other)
  Sender: FDA-Public Use
  Company Number: US-MTPC-MTDA2021-0032523

PATIENT
  Age: 65 Year
  Sex: Female

DRUGS (1)
  1. RADICAVA [Suspect]
     Active Substance: EDARAVONE
     Indication: Amyotrophic lateral sclerosis
     Dosage: 60 MILLIGRAM, QD FIVE DAYS, 2 OFF AND 5 DYA
     Route: 065

REACTIONS (4)
  - Amyotrophic lateral sclerosis [Unknown]
  - Endotracheal intubation [Not Recovered/Not Resolved]
  - Endocarditis bacterial [Not Recovered/Not Resolved]
  - Pleural effusion [Not Recovered/Not Resolved]

NARRATIVE: CASE EVENT DATE: 20211221
